FAERS Safety Report 24240326 (Version 1)
Quarter: 2024Q3

REPORT INFORMATION
  Report Type: Spontaneous
  Country: US (occurrence: US)
  Receive Date: 20240822
  Receipt Date: 20240822
  Transmission Date: 20241017
  Serious: No
  Sender: Harrow Health
  Company Number: US-IMP-2024000608

PATIENT
  Age: 76 Year
  Sex: Female

DRUGS (2)
  1. VEVYE [Suspect]
     Active Substance: CYCLOSPORINE
     Indication: Dry eye
     Dosage: ^TAKE IN THE MORNING AND AT NIGHT^ TO BOTH EYES
     Route: 047
     Dates: start: 20240717, end: 20240807
  2. Blink [Concomitant]
     Indication: Product used for unknown indication
     Route: 047

REACTIONS (1)
  - Vision blurred [Not Recovered/Not Resolved]

NARRATIVE: CASE EVENT DATE: 20240804
